FAERS Safety Report 6918152-8 (Version None)
Quarter: 2010Q3

REPORT INFORMATION
  Report Type: 
  Country: None (occurrence: None)
  Receive Date: 20100806
  Receipt Date: 20100720
  Transmission Date: 20110219
  Serious: Yes (Hospitalization)
  Sender: FDA-Public Use
  Company Number: IMP_05071_2010

PATIENT
  Sex: Male

DRUGS (1)
  1. TAMSULOSIN HYDROCHLORIDE [Suspect]
     Indication: PRODUCT USED FOR UNKNOWN INDICATION
     Dosage: DF

REACTIONS (5)
  - BLADDER SPASM [None]
  - CYSTITIS [None]
  - PRODUCT SUBSTITUTION ISSUE [None]
  - URINARY RETENTION [None]
  - URINE ANALYSIS ABNORMAL [None]
